FAERS Safety Report 6637398-X (Version None)
Quarter: 2010Q1

REPORT INFORMATION
  Report Type: 
  Country: None (occurrence: None)
  Receive Date: 20100316
  Receipt Date: 20100309
  Transmission Date: 20100710
  Serious: Yes (Hospitalization)
  Sender: FDA-Public Use
  Company Number: US-MERCK-1001USA01032

PATIENT
  Age: 82 Year
  Sex: Male

DRUGS (3)
  1. JANUVIA [Suspect]
     Indication: DIABETES MELLITUS
     Route: 048
     Dates: start: 20090101, end: 20091201
  2. JANUVIA [Suspect]
     Route: 048
     Dates: start: 20091201, end: 20100111
  3. INSULIN [Concomitant]
     Route: 065

REACTIONS (1)
  - DERMATITIS BULLOUS [None]
